FAERS Safety Report 5869328-2 (Version None)
Quarter: 2008Q3

REPORT INFORMATION
  Report Type: 
  Country: None (occurrence: None)
  Receive Date: 20080828
  Receipt Date: 20030526
  Transmission Date: 20090109
  Serious: Yes (Hospitalization, Other)
  Sender: FDA-Public Use
  Company Number: DSA_22700_2003

PATIENT
  Age: 10 Year
  Sex: Female

DRUGS (2)
  1. CEDAX [Suspect]
     Indication: STREPTOCOCCAL INFECTION
     Dosage: 240 MG QD PO
     Route: 048
     Dates: start: 20030414, end: 20030414
  2. ACETAMINOPHEN [Concomitant]

REACTIONS (2)
  - SOMNOLENCE [None]
  - STEVENS-JOHNSON SYNDROME [None]
